FAERS Safety Report 8320749-8 (Version None)
Quarter: 2012Q2

REPORT INFORMATION
  Report Type: 
  Country: None (occurrence: None)
  Receive Date: 20120430
  Receipt Date: 20120423
  Transmission Date: 20120825
  Serious: Yes (Death)
  Sender: FDA-Public Use
  Company Number: PHHY2012US035286

PATIENT
  Age: 71 Year
  Sex: Female

DRUGS (3)
  1. DILTIAZEM [Suspect]
  2. METOPROLOL TARTRATE [Suspect]
  3. ZOLPIDEM [Suspect]

REACTIONS (1)
  - COMPLETED SUICIDE [None]
